FAERS Safety Report 18550165 (Version 1)
Quarter: 2020Q4

REPORT INFORMATION
  Report Type: Spontaneous
  Country: AT (occurrence: AT)
  Receive Date: 20201126
  Receipt Date: 20201126
  Transmission Date: 20210114
  Serious: Yes (Other)
  Sender: FDA-Public Use
  Company Number: AT-AMGEN-AUTSP2020189392

PATIENT
  Age: 53 Year
  Sex: Female
  Weight: 75 kg

DRUGS (13)
  1. DEXAMETHASON [DEXAMETHASONE] [Concomitant]
     Active Substance: DEXAMETHASONE
     Dosage: UNK
     Dates: start: 20180423
  2. ULSAL [Concomitant]
     Active Substance: RANITIDINE HYDROCHLORIDE
  3. FENAKUT [Concomitant]
  4. TRASTUZUMAB. [Suspect]
     Active Substance: TRASTUZUMAB
     Indication: HER2 POSITIVE BREAST CANCER
     Dosage: 600 MILLIGRAM, Q3WK
     Route: 042
     Dates: start: 20180328
  5. PACLITAXEL. [Suspect]
     Active Substance: PACLITAXEL
     Dosage: 177.17 MILLIGRAM, QWK
     Route: 042
     Dates: start: 20180416
  6. PERTUZUMAB. [Suspect]
     Active Substance: PERTUZUMAB
     Indication: HER2 POSITIVE BREAST CANCER
     Dosage: 840 MILLIGRAM, Q3WK
     Route: 042
     Dates: start: 20180328
  7. KYTRIL [Concomitant]
     Active Substance: GRANISETRON HYDROCHLORIDE
  8. PACLITAXEL. [Suspect]
     Active Substance: PACLITAXEL
     Indication: HER2 POSITIVE BREAST CANCER
     Dosage: 147.76 MILLIGRAM, QWK
     Route: 042
     Dates: start: 20180328
  9. FENISTIL [Concomitant]
     Active Substance: DIMETHINDENE
  10. TRASTUZUMAB. [Suspect]
     Active Substance: TRASTUZUMAB
     Dosage: 378 MILLIGRAM, QWK
     Route: 042
     Dates: start: 20181123, end: 20181123
  11. TRASTUZUMAB EMTANSINE [Suspect]
     Active Substance: ADO-TRASTUZUMAB EMTANSINE
     Indication: ONYCHOLYSIS
     Dosage: 600 MILLIGRAM, Q3WK
     Route: 042
     Dates: start: 20190131, end: 20190517
  12. DEXABENE [Concomitant]
  13. CALCIDURAN [Concomitant]
     Active Substance: ASCORBIC ACID\CALCIUM PHOSPHATE\CHOLECALCIFEROL\CITRIC ACID MONOHYDRATE

REACTIONS (5)
  - Nasopharyngitis [Recovered/Resolved]
  - Off label use [Unknown]
  - Onycholysis [Recovered/Resolved]
  - Conjunctivitis [Recovered/Resolved]
  - Polyneuropathy [Recovered/Resolved]

NARRATIVE: CASE EVENT DATE: 20180522
